FAERS Safety Report 10007470 (Version 1)
Quarter: 2014Q1

REPORT INFORMATION
  Report Type: Spontaneous
  Country: US (occurrence: None)
  Receive Date: 20140312
  Receipt Date: 20140312
  Transmission Date: 20141002
  Serious: Yes (Other)
  Sender: FDA-Public Use
  Company Number: None

PATIENT
  Age: 51 Year
  Sex: Female

DRUGS (1)
  1. ORSYTHIA [Suspect]
     Route: 048
     Dates: start: 20140120, end: 20140212

REACTIONS (2)
  - Feeling abnormal [None]
  - Breast disorder female [None]
